FAERS Safety Report 17478250 (Version 5)
Quarter: 2020Q3

REPORT INFORMATION
  Report Type: Report from Study
  Country: US (occurrence: US)
  Receive Date: 20200228
  Receipt Date: 20200908
  Transmission Date: 20201102
  Serious: No
  Sender: FDA-Public Use
  Company Number: NVSC2020US056146

PATIENT
  Age: 63 Year
  Sex: Male

DRUGS (4)
  1. ENTRESTO [Suspect]
     Active Substance: SACUBITRIL\VALSARTAN
     Route: 048
  2. BISOPROLOL [Suspect]
     Active Substance: BISOPROLOL
     Indication: PRODUCT USED FOR UNKNOWN INDICATION
     Dosage: UNK UNK, UNKNOWN
     Route: 065
  3. ENTRESTO [Suspect]
     Active Substance: SACUBITRIL\VALSARTAN
     Indication: CARDIAC FAILURE
     Dosage: 24 MG, BID
     Route: 048
  4. ENTRESTO [Suspect]
     Active Substance: SACUBITRIL\VALSARTAN
     Indication: CARDIAC FAILURE CHRONIC
     Dosage: 1 DF, BID (24MG SACUBITRIL /26MGVALSARTAN)
     Route: 048

REACTIONS (8)
  - Ejection fraction abnormal [Recovering/Resolving]
  - Orthostatic hypertension [Unknown]
  - Urinary tract disorder [Unknown]
  - Dyspnoea exertional [Unknown]
  - Abdominal pain lower [Unknown]
  - Exercise tolerance decreased [Unknown]
  - Dizziness [Unknown]
  - Cough [Unknown]
